FAERS Safety Report 12670844 (Version 1)
Quarter: 2016Q3

REPORT INFORMATION
  Report Type: Spontaneous
  Country: US (occurrence: US)
  Receive Date: 20160822
  Receipt Date: 20160822
  Transmission Date: 20161109
  Serious: No
  Sender: FDA-Public Use
  Company Number: US-JAZZ-2016-US-006193

PATIENT
  Sex: Female

DRUGS (19)
  1. XYREM [Suspect]
     Active Substance: SODIUM OXYBATE
     Indication: SLEEP DISORDER
     Dosage: 2.25 G, BID
     Route: 048
     Dates: start: 201304, end: 201305
  2. ESCITALOPRAM [Concomitant]
     Active Substance: ESCITALOPRAM OXALATE
  3. VYVANSE [Concomitant]
     Active Substance: LISDEXAMFETAMINE DIMESYLATE
  4. XYREM [Suspect]
     Active Substance: SODIUM OXYBATE
     Dosage: 3 G, BID
     Route: 048
     Dates: start: 201305, end: 201306
  5. ADDERALL XR [Concomitant]
     Active Substance: AMPHETAMINE ASPARTATE\AMPHETAMINE SULFATE\DEXTROAMPHETAMINE SACCHARATE\DEXTROAMPHETAMINE SULFATE
  6. SYNTHROID [Concomitant]
     Active Substance: LEVOTHYROXINE SODIUM
  7. MEGARED PLANT OMEGA [Concomitant]
  8. DEXILANT DR [Concomitant]
  9. XYREM [Suspect]
     Active Substance: SODIUM OXYBATE
     Dosage: 4.5 G, BID
     Route: 048
     Dates: start: 201306
  10. COZAAR [Concomitant]
     Active Substance: LOSARTAN POTASSIUM
  11. EMERGEN C [Concomitant]
     Active Substance: MINERALS\VITAMINS
  12. CEFDINIR. [Concomitant]
     Active Substance: CEFDINIR
  13. ESTRADIOL. [Concomitant]
     Active Substance: ESTRADIOL
  14. BYSTOLIC [Concomitant]
     Active Substance: NEBIVOLOL HYDROCHLORIDE
  15. ADVIL [Concomitant]
     Active Substance: IBUPROFEN
  16. GARLIC. [Concomitant]
     Active Substance: GARLIC
  17. IMITREX [Concomitant]
     Active Substance: SUMATRIPTAN SUCCINATE
  18. VITAMIN D3 [Concomitant]
     Active Substance: CHOLECALCIFEROL
  19. ECHINACEA EXTRACT [Concomitant]
     Active Substance: ECHINACEA EXTRACT

REACTIONS (1)
  - Influenza [Not Recovered/Not Resolved]
